FAERS Safety Report 7819136-8 (Version None)
Quarter: 2011Q4

REPORT INFORMATION
  Report Type: 
  Country: None (occurrence: None)
  Receive Date: 20111018
  Receipt Date: 20111010
  Transmission Date: 20120403
  Serious: Yes (Hospitalization)
  Sender: FDA-Public Use
  Company Number: FR-UCBSA-043123

PATIENT
  Age: 42 Year
  Sex: Female

DRUGS (3)
  1. TEGRETOL [Suspect]
     Indication: PARTIAL SEIZURES
     Dosage: 400 MG X 2
     Route: 048
     Dates: start: 20090101
  2. KEPPRA [Suspect]
     Indication: PARTIAL SEIZURES
     Route: 048
     Dates: start: 20090101
  3. IMPLANON [Suspect]
     Indication: CONTRACEPTION
     Dosage: 25-30 MCG
     Route: 058
     Dates: start: 20080724, end: 20110922

REACTIONS (2)
  - ABORTION INDUCED [None]
  - PREGNANCY WITH IMPLANT CONTRACEPTIVE [None]
